FAERS Safety Report 12478463 (Version 2)
Quarter: 2016Q3

REPORT INFORMATION
  Report Type: Spontaneous
  Country: CA (occurrence: CA)
  Receive Date: 20160618
  Receipt Date: 20160723
  Transmission Date: 20161109
  Serious: Yes (Death, Other)
  Sender: FDA-Public Use
  Company Number: CA-009507513-1603CAN005234

PATIENT
  Sex: Female

DRUGS (2)
  1. TEMODAL [Suspect]
     Active Substance: TEMOZOLOMIDE
     Dosage: 140 MG DAILY FOR 21 DAYS CYCLE
     Route: 048
     Dates: start: 20151203
  2. TEMODAL [Suspect]
     Active Substance: TEMOZOLOMIDE
     Indication: GLIOBLASTOMA MULTIFORME
     Dosage: 140 MG DAILY FOR 5 DAYS CYCLE
     Route: 048

REACTIONS (3)
  - Cerebral haemorrhage [Fatal]
  - Drug ineffective [Not Recovered/Not Resolved]
  - Brain neoplasm [Fatal]

NARRATIVE: CASE EVENT DATE: 2016
